FAERS Safety Report 21432426 (Version 2)
Quarter: 2023Q1

REPORT INFORMATION
  Report Type: Report from Study
  Country: US (occurrence: US)
  Receive Date: 20221009
  Receipt Date: 20230109
  Transmission Date: 20230417
  Serious: Yes (Other)
  Sender: FDA-Public Use
  Company Number: US-ABBVIE-22K-163-4466314-00

PATIENT
  Sex: Male

DRUGS (2)
  1. IMBRUVICA [Suspect]
     Active Substance: IBRUTINIB
     Indication: Chronic lymphocytic leukaemia
     Route: 048
     Dates: start: 201805
  2. IMBRUVICA [Suspect]
     Active Substance: IBRUTINIB
     Indication: Chronic lymphocytic leukaemia
     Route: 048
     Dates: start: 20161216

REACTIONS (7)
  - Pulmonary fibrosis [Unknown]
  - Dry mouth [Unknown]
  - White blood cell count increased [Not Recovered/Not Resolved]
  - Neuropathy peripheral [Unknown]
  - Erythema [Unknown]
  - Tooth disorder [Unknown]
  - Spinal disorder [Unknown]
